FAERS Safety Report 24156677 (Version 1)
Quarter: 2024Q3

REPORT INFORMATION
  Report Type: Spontaneous
  Country: FR (occurrence: FR)
  Receive Date: 20240731
  Receipt Date: 20240731
  Transmission Date: 20241016
  Serious: Yes (Other)
  Sender: AUROBINDO
  Company Number: FR-AFSSAPS-NC2024000872

PATIENT
  Age: 57 Year
  Sex: Male

DRUGS (22)
  1. ATENOLOL [Suspect]
     Active Substance: ATENOLOL
     Indication: Abdominal pain
     Dosage: 50 MILLIGRAM, ONCE A DAY
     Route: 048
     Dates: start: 20240623, end: 20240703
  2. DULOXETINE [Suspect]
     Active Substance: DULOXETINE
     Indication: Neuralgia
     Dosage: 60 MILLIGRAM, ONCE A DAY
     Route: 048
     Dates: start: 20240617, end: 20240619
  3. DULOXETINE [Suspect]
     Active Substance: DULOXETINE
     Dosage: 60 MILLIGRAM, ONCE A DAY
     Route: 048
     Dates: start: 20240623, end: 20240626
  4. GABAPENTIN [Suspect]
     Active Substance: GABAPENTIN
     Indication: Neuralgia
     Dosage: 900 MILLIGRAM, ONCE A DAY
     Route: 048
     Dates: start: 20240617, end: 20240619
  5. GABAPENTIN [Suspect]
     Active Substance: GABAPENTIN
     Dosage: 900 MILLIGRAM, ONCE A DAY
     Route: 048
     Dates: start: 20240623, end: 20240626
  6. TRIMEBUTINE [Suspect]
     Active Substance: TRIMEBUTINE
     Indication: Abdominal pain
     Dosage: 300 MILLIGRAM, ONCE A DAY
     Route: 042
     Dates: start: 20240617, end: 20240627
  7. DIATRIZOATE MEGLUMINE\DIATRIZOATE SODIUM [Suspect]
     Active Substance: DIATRIZOATE MEGLUMINE\DIATRIZOATE SODIUM
     Indication: Scan
     Dosage: 1 DOSAGE FORM
     Route: 048
     Dates: start: 20240621, end: 20240621
  8. KETAMINE [Suspect]
     Active Substance: KETAMINE
     Indication: Pain
     Dosage: 20 MILLIGRAM AS NECCESARY
     Route: 042
     Dates: start: 20240620, end: 20240702
  9. MORPHINE HYDROCHLORIDE [Suspect]
     Active Substance: MORPHINE HYDROCHLORIDE
     Indication: Pain
     Dosage: 30 MILLIGRAM, ONCE A DAY
     Route: 042
     Dates: start: 20240617, end: 20240701
  10. MORPHINE HYDROCHLORIDE [Suspect]
     Active Substance: MORPHINE HYDROCHLORIDE
     Dosage: 30 MILLIGRAM
     Route: 042
     Dates: start: 20240703, end: 20240703
  11. OMNIPAQUE [Suspect]
     Active Substance: IOHEXOL
     Indication: Scan
     Dosage: 1 DOSAGE FORM
     Route: 042
     Dates: start: 20240614, end: 20240614
  12. OMNIPAQUE [Suspect]
     Active Substance: IOHEXOL
     Dosage: 1 DOSAGE FORM
     Route: 042
     Dates: start: 20240618, end: 20240618
  13. OMNIPAQUE [Suspect]
     Active Substance: IOHEXOL
     Dosage: 1 DOSAGE FORM
     Route: 042
     Dates: start: 20240621, end: 20240621
  14. OMNIPAQUE [Suspect]
     Active Substance: IOHEXOL
     Dosage: 1 DOSAGE FORM
     Route: 042
     Dates: start: 20240625, end: 20240625
  15. OMNIPAQUE [Suspect]
     Active Substance: IOHEXOL
     Dosage: 1 DOSAGE FORM
     Route: 042
     Dates: start: 20240630, end: 20240630
  16. PANTOPRAZOLE [Suspect]
     Active Substance: PANTOPRAZOLE
     Indication: Prophylaxis against gastrointestinal ulcer
     Dosage: 40 MILLIGRAM, ONCE A DAY
     Route: 042
     Dates: start: 20240617, end: 20240625
  17. ALFENTANIL HYDROCHLORIDE [Suspect]
     Active Substance: ALFENTANIL HYDROCHLORIDE
     Indication: Pain
     Dosage: 750 MICROGRAM
     Route: 042
     Dates: start: 20240620, end: 20240702
  18. ROPIVACAINE [Suspect]
     Active Substance: ROPIVACAINE
     Indication: Pain
     Dosage: UNK
     Route: 008
     Dates: start: 20240617, end: 20240620
  19. ROPIVACAINE [Suspect]
     Active Substance: ROPIVACAINE
     Dosage: UNK
     Route: 008
     Dates: start: 20240623, end: 20240625
  20. ATENOLOL [Suspect]
     Active Substance: ATENOLOL
     Indication: Abdominal pain
     Dosage: 6 MILLIGRAM, ONCE A DAY
     Route: 042
     Dates: start: 20240620, end: 20240622
  21. VENOFER [Suspect]
     Active Substance: IRON SUCROSE
     Indication: Iron deficiency anaemia
     Dosage: 1 DOSAGE FORM
     Route: 042
     Dates: start: 20240620, end: 20240620
  22. VENOFER [Suspect]
     Active Substance: IRON SUCROSE
     Dosage: 1 DOSAGE FORM
     Route: 042
     Dates: start: 20240622, end: 20240622

REACTIONS (4)
  - Eosinophilia [Recovering/Resolving]
  - Rash morbilliform [Recovering/Resolving]
  - Eczema [Recovering/Resolving]
  - Blister [Recovering/Resolving]

NARRATIVE: CASE EVENT DATE: 20240625
